FAERS Safety Report 9047001 (Version 3)
Quarter: 2013Q1

REPORT INFORMATION
  Report Type: Report from Study
  Country: FI (occurrence: FI)
  Receive Date: 20130204
  Receipt Date: 20130228
  Transmission Date: 20140127
  Serious: Yes (Other)
  Sender: FDA-Public Use
  Company Number: FI-BAYER-2013-011114

PATIENT
  Age: 64 Year
  Sex: Female
  Weight: 66.7 kg

DRUGS (3)
  1. REGORAFENIB [Suspect]
     Indication: COLORECTAL CANCER METASTATIC
     Dosage: 160 MG, TOTAL DAILY DOSE
     Route: 048
     Dates: start: 20130107, end: 20130119
  2. REGORAFENIB [Suspect]
     Indication: COLORECTAL CANCER METASTATIC
     Dosage: 40 MG X 3
     Route: 048
     Dates: start: 20130205, end: 20130219
  3. REGORAFENIB [Suspect]
     Indication: COLORECTAL CANCER METASTATIC
     Dosage: 160 MG, TOTAL DAILY DOSE (40 MG X 4)
     Route: 048
     Dates: start: 20130220

REACTIONS (1)
  - Urticaria [Recovered/Resolved]
